FAERS Safety Report 7919076-X (Version None)
Quarter: 2011Q4

REPORT INFORMATION
  Report Type: 
  Country: None (occurrence: None)
  Receive Date: 20111116
  Receipt Date: 20111107
  Transmission Date: 20120403
  Serious: Yes (Other)
  Sender: FDA-Public Use
  Company Number: CA-ASTRAZENECA-2011SE67465

PATIENT
  Age: 65 Year
  Sex: Female

DRUGS (2)
  1. SEROQUEL XR [Suspect]
     Route: 048
  2. HRT BIOIDENTICAL HORMONE CREAM [Concomitant]

REACTIONS (4)
  - MYDRIASIS [None]
  - BREAST ENLARGEMENT [None]
  - INSOMNIA [None]
  - WEIGHT INCREASED [None]
